FAERS Safety Report 22590913 (Version 1)
Quarter: 2023Q2

REPORT INFORMATION
  Report Type: Spontaneous
  Country: US (occurrence: None)
  Receive Date: 20230611
  Receipt Date: 20230611
  Transmission Date: 20230721
  Serious: Yes (Other)
  Sender: FDA-Public Use
  Company Number: None

PATIENT
  Age: 4 Week
  Sex: Female
  Weight: 72 kg

DRUGS (6)
  1. LO LOESTRIN FE [Suspect]
     Active Substance: ETHINYL ESTRADIOL\NORETHINDRONE ACETATE
     Indication: Contraception
     Dosage: OTHER STRENGTH : 1MG/ 10MCG/ 10MCG;?OTHER QUANTITY : 28 TABLET(S);?FREQUENCY : DAILY;?
     Route: 048
  2. ZILXI [Concomitant]
     Active Substance: MINOCYCLINE HYDROCHLORIDE
  3. TRETINOIN [Concomitant]
     Active Substance: TRETINOIN
  4. Ketokonazole cream 2% [Concomitant]
  5. APRI [Concomitant]
     Active Substance: DESOGESTREL\ETHINYL ESTRADIOL
  6. SUMATRIPTAN SUCCINATE [Concomitant]
     Active Substance: SUMATRIPTAN SUCCINATE

REACTIONS (6)
  - Acne cystic [None]
  - Scar [None]
  - Product substitution issue [None]
  - Pain [None]
  - Inflammation [None]
  - Contusion [None]

NARRATIVE: CASE EVENT DATE: 20230507
